FAERS Safety Report 17468401 (Version 2)
Quarter: 2020Q1

REPORT INFORMATION
  Report Type: Spontaneous
  Country: US (occurrence: US)
  Receive Date: 20200227
  Receipt Date: 20200327
  Transmission Date: 20200409
  Serious: Yes (Other)
  Sender: FDA-Public Use
  Company Number: US-TASMAN PHARMA, INC.-2020TSM00052

PATIENT
  Age: 37 Year
  Sex: Female
  Weight: 66.21 kg

DRUGS (5)
  1. CLOZAPINE (AUROBINDO MANUFACTURER) [Suspect]
     Active Substance: CLOZAPINE
     Indication: SCHIZOPHRENIA
     Dosage: 100 MG, 1X/DAY EVERY MORNING
     Route: 048
     Dates: start: 20191015, end: 20200212
  2. CLOZAPINE (AUROBINDO MANUFACTURER) [Suspect]
     Active Substance: CLOZAPINE
     Dosage: 300 MG, 1X/DAY AT BEDTIME
     Route: 048
     Dates: start: 20191015, end: 20200212
  3. CLOZAPINE. [Suspect]
     Active Substance: CLOZAPINE
     Indication: SCHIZOPHRENIA
  4. CLOZAPINE (ACCORD MANUFACTURER) [Suspect]
     Active Substance: CLOZAPINE
     Dosage: 300 MG, 1X/DAY AT BEDTIME
     Route: 048
     Dates: start: 20191015, end: 20200212
  5. CLOZAPINE (ACCORD MANUFACTURER) [Suspect]
     Active Substance: CLOZAPINE
     Indication: SCHIZOPHRENIA
     Dosage: 100 MG, 1X/DAY EVERY MORNING
     Route: 048
     Dates: start: 20191015, end: 20200212

REACTIONS (1)
  - Neutropenia [Recovered/Resolved]

NARRATIVE: CASE EVENT DATE: 20200212
